FAERS Safety Report 17801919 (Version 1)
Quarter: 2020Q2

REPORT INFORMATION
  Report Type: Spontaneous
  Country: US (occurrence: US)
  Receive Date: 20200518
  Receipt Date: 20200518
  Transmission Date: 20200714
  Serious: No
  Sender: FDA-Public Use
  Company Number: None

PATIENT
  Age: 39 Year
  Sex: Female
  Weight: 113.4 kg

DRUGS (1)
  1. FMP250 OPENBIOME [Suspect]
     Active Substance: FECAL MICROBIOTA
     Indication: CLOSTRIDIUM DIFFICILE INFECTION
     Route: 054
     Dates: start: 20190919, end: 20190919

REACTIONS (4)
  - Probiotic therapy [None]
  - Product contamination microbial [None]
  - Transmission of an infectious agent via transplant [None]
  - Post procedural complication [None]

NARRATIVE: CASE EVENT DATE: 20190919
